FAERS Safety Report 4941735-1 (Version None)
Quarter: 2006Q1

REPORT INFORMATION
  Report Type: 
  Country: None (occurrence: None)
  Receive Date: 20060308
  Receipt Date: 20060224
  Transmission Date: 20060701
  Serious: Yes (Hospitalization, Other)
  Sender: FDA-Public Use
  Company Number: 2006028112

PATIENT
  Age: 50 Year
  Sex: Female
  Weight: 55.7924 kg

DRUGS (2)
  1. CELEBREX [Suspect]
     Indication: BURSITIS
     Dosage: 100 MG (100 MG, 1 IN 1 D)
  2. THYROID TAB [Concomitant]

REACTIONS (8)
  - HYPERTENSION [None]
  - HYPOAESTHESIA [None]
  - INTERVERTEBRAL DISC PROTRUSION [None]
  - JOINT HYPEREXTENSION [None]
  - MENISCUS LESION [None]
  - MONARTHRITIS [None]
  - SPINAL CORD COMPRESSION [None]
  - THYROID NEOPLASM [None]
